FAERS Safety Report 5387237-2 (Version None)
Quarter: 2007Q3

REPORT INFORMATION
  Report Type: 
  Country: None (occurrence: None)
  Receive Date: 20070716
  Receipt Date: 20070703
  Transmission Date: 20080115
  Serious: Yes (Other)
  Sender: FDA-Public Use
  Company Number: PHHO2007BR11105

PATIENT
  Age: 83 Year
  Sex: Female

DRUGS (4)
  1. DIOVAN [Suspect]
     Indication: HYPERTENSION
     Dosage: 160 MG, BID
     Route: 048
  2. ANCORON [Concomitant]
     Indication: TACHYCARDIA
  3. TRANQUINAL [Concomitant]
     Indication: INSOMNIA
  4. DAFLON [Concomitant]

REACTIONS (2)
  - HYPERTENSION [None]
  - PRURITUS GENERALISED [None]
